FAERS Safety Report 5714792-2 (Version None)
Quarter: 2008Q2

REPORT INFORMATION
  Report Type: 
  Country: None (occurrence: None)
  Receive Date: 20080423
  Receipt Date: 20070413
  Transmission Date: 20081010
  Serious: Yes (Death)
  Sender: FDA-Public Use
  Company Number: NL-ROCHE-494817

PATIENT
  Sex: Male

DRUGS (4)
  1. CAPECITABINE [Suspect]
     Dosage: DAYS 1-14 EVERY 3 WEEK CYCLE AS PER PROTOCOL. NR + DATE LAST CYCLE: 22 AUGUST 2006.
     Route: 048
     Dates: start: 20060131
  2. BEVACIZUMAB [Suspect]
     Dosage: ON DAY 1 OF EVERY THREE WEEKS CYCLE AS PER PROTOCOL. NR + DATE LAST CYCLE: 22 AUGUST 2006.
     Route: 042
     Dates: start: 20060131
  3. OXALIPLATIN [Suspect]
     Dosage: ON DAY 1 OF EVERY 3 WEEK CYLCE AS PER PROTOCOL. NR + DATE LAST CYCLE: 16 MAY 2006.
     Route: 042
     Dates: start: 20060131
  4. TOLTERODINE TARTRATE [Concomitant]

REACTIONS (1)
  - DISEASE PROGRESSION [None]
